FAERS Safety Report 6209060-9 (Version None)
Quarter: 2009Q2

REPORT INFORMATION
  Report Type: 
  Country: None (occurrence: None)
  Receive Date: 20090529
  Receipt Date: 20090525
  Transmission Date: 20091009
  Serious: Yes (Death, Other)
  Sender: FDA-Public Use
  Company Number: PHHY2009US20859

PATIENT
  Age: 67 Year
  Sex: Male

DRUGS (2)
  1. ZOLEDRONIC ACID [Suspect]
     Indication: MULTIPLE MYELOMA
  2. RADIOTHERAPY [Concomitant]

REACTIONS (6)
  - DEBRIDEMENT [None]
  - DISEASE PROGRESSION [None]
  - HYPERBARIC OXYGEN THERAPY [None]
  - OSTEONECROSIS [None]
  - SURGERY [None]
  - WOUND DEHISCENCE [None]
